FAERS Safety Report 9422072 (Version 1)
Quarter: 2013Q3

REPORT INFORMATION
  Report Type: Spontaneous
  Country: US (occurrence: US)
  Receive Date: 20130726
  Receipt Date: 20130726
  Transmission Date: 20140515
  Serious: No
  Sender: FDA-Public Use
  Company Number: US-BAYER-2013-090297

PATIENT
  Age: 67 Year
  Sex: Female
  Weight: 58.96 kg

DRUGS (1)
  1. ALEVE CAPLET [Suspect]
     Indication: ANALGESIC THERAPY
     Dosage: 2 DF, PRN
     Route: 048
     Dates: end: 20130721

REACTIONS (2)
  - Pruritus generalised [Recovered/Resolved]
  - Lip swelling [Recovered/Resolved]
